FAERS Safety Report 18463488 (Version 4)
Quarter: 2021Q1

REPORT INFORMATION
  Report Type: Spontaneous
  Country: US (occurrence: US)
  Receive Date: 20201104
  Receipt Date: 20210204
  Transmission Date: 20210419
  Serious: Yes (Other)
  Sender: FDA-Public Use
  Company Number: US-AMGEN-USASP2020174187

PATIENT
  Age: 68 Year
  Sex: Male

DRUGS (4)
  1. XGEVA [Suspect]
     Active Substance: DENOSUMAB
     Indication: PRODUCT USED FOR UNKNOWN INDICATION
     Dosage: UNK
     Route: 065
  2. LUPRON [Suspect]
     Active Substance: LEUPROLIDE ACETATE
     Indication: PRODUCT USED FOR UNKNOWN INDICATION
     Dosage: UNK
     Route: 065
  3. XTANDI [Suspect]
     Active Substance: ENZALUTAMIDE
     Indication: PROSTATE CANCER
     Dosage: 160 MILLIGRAM, QD
     Route: 048
     Dates: start: 20190820
  4. XTANDI [Suspect]
     Active Substance: ENZALUTAMIDE
     Dosage: UNK
     Route: 048

REACTIONS (20)
  - Depression [Unknown]
  - Psoriasis [Unknown]
  - Dysgeusia [Unknown]
  - Psoriatic arthropathy [Unknown]
  - Fat redistribution [Unknown]
  - Testicular atrophy [Unknown]
  - Pulmonary congestion [Unknown]
  - Nocturia [Unknown]
  - Rhinorrhoea [Unknown]
  - Weight increased [Unknown]
  - Memory impairment [Unknown]
  - Dyscalculia [Unknown]
  - Hunger [Recovering/Resolving]
  - Tremor [Unknown]
  - Appetite disorder [Recovering/Resolving]
  - Alopecia [Unknown]
  - Gynaecomastia [Unknown]
  - Defaecation urgency [Unknown]
  - Hot flush [Recovering/Resolving]
  - Skin laxity [Unknown]

NARRATIVE: CASE EVENT DATE: 2019
